FAERS Safety Report 8303738 (Version 3)
Quarter: 2014Q4

REPORT INFORMATION
  Report Type: Spontaneous
  Country: US (occurrence: US)
  Receive Date: 20111220
  Receipt Date: 20141118
  Transmission Date: 20150529
  Serious: Yes (Hospitalization, Other)
  Sender: FDA-Public Use
  Company Number: US-ASTRAZENECA-2011SE16418

PATIENT
  Age: 77 Year
  Sex: Female
  Weight: 74.4 kg

DRUGS (36)
  1. XYLOCAINE [Suspect]
     Active Substance: LIDOCAINE HYDROCHLORIDE
     Route: 065
  2. COUMADIN [Concomitant]
     Active Substance: WARFARIN SODIUM
  3. ZEBETA [Concomitant]
     Active Substance: BISOPROLOL FUMARATE
     Indication: HYPERTENSION
  4. LORAZEPAM. [Concomitant]
     Active Substance: LORAZEPAM
     Indication: SLEEP DISORDER
  5. ICAPS EYE VITAMINS [Concomitant]
  6. VITAMIN B COMPLEX [Concomitant]
     Active Substance: CYANOCOBALAMIN\DEXPANTHENOL\NIACINAMIDE\PYRIDOXINE HYDROCHLORIDE\RIBOFLAVIN 5^-PHOSPHATE SODIUM\THIAMINE HYDROCHLORIDE\VITAMIN B COMPLEX
  7. THERA TEARS EYE DROPS [Concomitant]
  8. SYNTHROID [Concomitant]
     Active Substance: LEVOTHYROXINE SODIUM
     Indication: HYPOTHYROIDISM
  9. LOSARTAN [Concomitant]
     Active Substance: LOSARTAN
     Indication: HYPERTENSION
  10. LORAZEPAM. [Concomitant]
     Active Substance: LORAZEPAM
     Indication: ANXIETY
  11. JANTOVAN [Concomitant]
  12. LASIX [Concomitant]
     Active Substance: FUROSEMIDE
  13. VASOTEC [Concomitant]
     Active Substance: ENALAPRIL MALEATE
     Indication: HYPERTENSION
  14. VASOTEC [Concomitant]
     Active Substance: ENALAPRIL MALEATE
     Indication: CARDIAC DISORDER
  15. NOVOLOG [Concomitant]
     Active Substance: INSULIN ASPART
     Indication: DIABETES MELLITUS
     Dosage: 70/30, 6 UNITS AM, 5 UNITS PM, ADJUST AS NEEDED.
  16. REGLAN [Concomitant]
     Active Substance: METOCLOPRAMIDE HYDROCHLORIDE
     Indication: DRUG INTERACTION
     Dosage: 1/2 5 MG BEFORE MEALS
  17. BENADRYL [Concomitant]
     Active Substance: DIPHENHYDRAMINE HYDROCHLORIDE
     Indication: SLEEP DISORDER
     Dosage: 2 AT NIGHT, MORE IF NEEDED
  18. GAS-X [Concomitant]
     Active Substance: DIMETHICONE
     Dosage: AFTER EATING AND AS NEEDED
  19. ZEBETA [Concomitant]
     Active Substance: BISOPROLOL FUMARATE
     Indication: CARDIAC DISORDER
  20. SINGULAIR [Concomitant]
     Active Substance: MONTELUKAST SODIUM
     Indication: ASTHMA
     Dosage: 1 IN EVENING
  21. TYLENOL [Concomitant]
     Active Substance: ACETAMINOPHEN
     Indication: ARTHRITIS
     Dosage: 2, UP TO THREE DOSES DAILY
  22. REGLAN [Concomitant]
     Active Substance: METOCLOPRAMIDE HYDROCHLORIDE
     Indication: ADVERSE DRUG REACTION
     Dosage: 1/2 5 MG BEFORE MEALS
  23. CHILDREN^S CHEWABLE MULTIVITAMINS AND IRON [Concomitant]
  24. NEXIUM [Suspect]
     Active Substance: ESOMEPRAZOLE MAGNESIUM
     Dosage: TWO TIMES DAILY, ONE HOUR BEFORE BREAKFAST AND SUPPER
     Route: 048
  25. OMEPRAZOLE. [Suspect]
     Active Substance: OMEPRAZOLE
     Route: 048
  26. CRESTOR [Suspect]
     Active Substance: ROSUVASTATIN CALCIUM
     Indication: BLOOD CHOLESTEROL ABNORMAL
     Route: 048
  27. LOSARTAN [Concomitant]
     Active Substance: LOSARTAN
     Indication: CARDIAC DISORDER
  28. BENADRYL [Concomitant]
     Active Substance: DIPHENHYDRAMINE HYDROCHLORIDE
     Indication: HYPERSENSITIVITY
     Dosage: 2 AT NIGHT, MORE IF NEEDED
  29. SYMBICORT [Suspect]
     Active Substance: BUDESONIDE\FORMOTEROL FUMARATE DIHYDRATE
     Route: 055
  30. WARFARIN [Concomitant]
     Active Substance: WARFARIN
  31. REGLAN [Concomitant]
     Active Substance: METOCLOPRAMIDE HYDROCHLORIDE
     Indication: IMPAIRED GASTRIC EMPTYING
     Dosage: 1/2 5 MG BEFORE MEALS
  32. TRAMADOL [Concomitant]
     Active Substance: TRAMADOL
     Indication: BURSITIS
     Dosage: UP TO FOUR DAILY, USUALLY 1 OR 2 AT NIGHT
  33. PROAIR HFA [Concomitant]
     Active Substance: ALBUTEROL SULFATE
     Dosage: 2 PUFFS EVERY FOUR HOURS, AS NEEDED
  34. LORAZEPAM. [Concomitant]
     Active Substance: LORAZEPAM
     Indication: ANXIETY
     Dosage: HALF AS NEEDED, UP TO 3 IN 24 HRS
  35. LORAZEPAM. [Concomitant]
     Active Substance: LORAZEPAM
     Indication: SLEEP DISORDER
     Dosage: HALF AS NEEDED, UP TO 3 IN 24 HRS
  36. VITAMIN D [Concomitant]
     Active Substance: CHOLECALCIFEROL
     Indication: VITAMIN D DECREASED
     Dosage: 50,000 UNITS TWICE A MONTH

REACTIONS (40)
  - Barrett^s oesophagus [Unknown]
  - Bursitis [Unknown]
  - Coronary artery disease [Unknown]
  - Malaise [Unknown]
  - Osteoarthritis [Unknown]
  - Cardiac disorder [Unknown]
  - Chronic kidney disease [Unknown]
  - Hypertension [Unknown]
  - Sinusitis [Unknown]
  - Bundle branch block left [Unknown]
  - Palpitations [Unknown]
  - Chemical injury [Unknown]
  - Dyspnoea [Unknown]
  - Impaired gastric emptying [Unknown]
  - Asthma [Unknown]
  - Anaemia [Unknown]
  - Diabetes mellitus [Unknown]
  - Mitral valve incompetence [Unknown]
  - Neuropathy peripheral [Unknown]
  - Dental caries [Unknown]
  - Fungal infection [Unknown]
  - Cardiomyopathy [Unknown]
  - Nasopharyngitis [Unknown]
  - Cough [Unknown]
  - Cataract [Unknown]
  - Cardiac failure congestive [Unknown]
  - Sinus disorder [Unknown]
  - Dyslipidaemia [Unknown]
  - Granuloma [Unknown]
  - Respiratory tract infection [Unknown]
  - Off label use [Unknown]
  - Intestinal obstruction [Unknown]
  - Gastrooesophageal reflux disease [Unknown]
  - Histoplasmosis [Unknown]
  - Wheezing [Unknown]
  - Drug hypersensitivity [Unknown]
  - Endotracheal intubation complication [Unknown]
  - Hypothyroidism [Unknown]
  - Fatigue [Unknown]
  - Pruritus [Unknown]

NARRATIVE: CASE EVENT DATE: 201012
